FAERS Safety Report 14068553 (Version 1)
Quarter: 2017Q4

REPORT INFORMATION
  Report Type: Spontaneous
  Country: US (occurrence: US)
  Receive Date: 20171010
  Receipt Date: 20171010
  Transmission Date: 20180321
  Serious: No
  Sender: FDA-Public Use
  Company Number: None

PATIENT
  Age: 33 Year
  Sex: Female

DRUGS (1)
  1. COPAXONE [Suspect]
     Active Substance: GLATIRAMER ACETATE
     Indication: MULTIPLE SCLEROSIS
     Dosage: ?          OTHER FREQUENCY:TIW;?
     Route: 058
     Dates: start: 20170919, end: 20171003

REACTIONS (6)
  - Injection site rash [None]
  - Influenza like illness [None]
  - Injection site reaction [None]
  - Rash papular [None]
  - Rash erythematous [None]
  - Injection site pain [None]

NARRATIVE: CASE EVENT DATE: 20170921
